FAERS Safety Report 23436219 (Version 1)
Quarter: 2024Q1

REPORT INFORMATION
  Report Type: Spontaneous
  Country: GB (occurrence: GB)
  Receive Date: 20240124
  Receipt Date: 20240124
  Transmission Date: 20240410
  Serious: Yes (Other)
  Sender: FDA-Public Use
  Company Number: None

PATIENT
  Age: 79 Year
  Weight: 59 kg

DRUGS (8)
  1. PROMETHAZINE HYDROCHLORIDE [Suspect]
     Active Substance: PROMETHAZINE HYDROCHLORIDE
     Route: 065
     Dates: start: 20240116
  2. OMEPRAZOLE [Concomitant]
     Active Substance: OMEPRAZOLE
     Dates: start: 20230130
  3. CALCIUM CARBONATE\CHOLECALCIFEROL [Concomitant]
     Active Substance: CALCIUM CARBONATE\CHOLECALCIFEROL
     Dates: start: 20230130
  4. BISOPROLOL [Concomitant]
     Active Substance: BISOPROLOL\BISOPROLOL FUMARATE
     Dates: start: 20230130
  5. DIAZEPAM [Concomitant]
     Active Substance: DIAZEPAM
     Dosage: TIME INTERVAL: 0.33333333 DAYS
     Dates: start: 20231218, end: 20240101
  6. PHENERGAN [Concomitant]
     Active Substance: PROMETHAZINE HYDROCHLORIDE
     Dosage: TIME INTERVAL: AS NECESSARY: AT NIGHT AS NEEDED
     Dates: start: 20240111
  7. ACETAMINOPHEN [Suspect]
     Active Substance: ACETAMINOPHEN
     Route: 065
     Dates: start: 20240116
  8. NAPROXEN [Concomitant]
     Active Substance: NAPROXEN
     Dosage: WITH OR SOON AFTER FOOD,
     Dates: start: 20231218, end: 20240101

REACTIONS (1)
  - Palpitations [Recovered/Resolved]
